FAERS Safety Report 5104629-7 (Version None)
Quarter: 2006Q3

REPORT INFORMATION
  Report Type: 
  Country: None (occurrence: None)
  Receive Date: 20060911
  Receipt Date: 20060830
  Transmission Date: 20061208
  Serious: Yes (Hospitalization)
  Sender: FDA-Public Use
  Company Number: GB200608001168

PATIENT
  Age: 41 Year
  Sex: Female

DRUGS (3)
  1. OLANZAPINE [Suspect]
     Indication: PSYCHOTIC DISORDER
     Dosage: 80 MG, ORAL
     Route: 048
     Dates: start: 20060807, end: 20060807
  2. ALCOHOL (ETHANOL) [Concomitant]
  3. PAROXETINE [Concomitant]

REACTIONS (4)
  - ACUTE STRESS DISORDER [None]
  - ALCOHOL USE [None]
  - OVERDOSE [None]
  - SOMNOLENCE [None]
